FAERS Safety Report 6198527-8 (Version None)
Quarter: 2009Q2

REPORT INFORMATION
  Report Type: 
  Country: None (occurrence: None)
  Receive Date: 20090521
  Receipt Date: 20090514
  Transmission Date: 20091009
  Serious: Yes (Other)
  Sender: FDA-Public Use
  Company Number: PHEH2009US04424

PATIENT
  Sex: Female

DRUGS (1)
  1. RECLAST [Suspect]
     Indication: BONE DISORDER
     Dosage: UNK
     Dates: start: 20080701

REACTIONS (11)
  - BACK PAIN [None]
  - CATARACT [None]
  - DRY SKIN [None]
  - NAIL DISORDER [None]
  - PAIN IN EXTREMITY [None]
  - PERIPHERAL COLDNESS [None]
  - RENAL PAIN [None]
  - SKIN DISORDER [None]
  - SKIN EXFOLIATION [None]
  - TOOTH DISORDER [None]
  - VISUAL ACUITY REDUCED [None]
